FAERS Safety Report 8483168-X (Version None)
Quarter: 2012Q3

REPORT INFORMATION
  Report Type: 
  Country: None (occurrence: None)
  Receive Date: 20120702
  Receipt Date: 20120625
  Transmission Date: 20120928
  Serious: Yes (Hospitalization, Other)
  Sender: FDA-Public Use
  Company Number: PHHY2012NO053575

PATIENT
  Sex: Male

DRUGS (3)
  1. CLOZAPINE [Suspect]
     Dosage: 900 MG, ONCE DAILY
  2. CLOZAPINE [Suspect]
     Dosage: 700 MG, UNK
  3. OLANZAPINE [Concomitant]
     Dosage: 30 MG, UNK

REACTIONS (1)
  - PSYCHOTIC DISORDER [None]
